FAERS Safety Report 20847784 (Version 2)
Quarter: 2022Q3

REPORT INFORMATION
  Report Type: Report from Study
  Country: JP (occurrence: JP)
  Receive Date: 20220519
  Receipt Date: 20220809
  Transmission Date: 20221027
  Serious: Yes (Death, Hospitalization, Other)
  Sender: FDA-Public Use
  Company Number: JP-SHIRE-JP201923621AA

PATIENT
  Sex: Female

DRUGS (6)
  1. VELAGLUCERASE ALFA [Suspect]
     Active Substance: VELAGLUCERASE ALFA
     Indication: Gaucher^s disease type III
     Dosage: 60 INTERNATIONAL UNIT/KILOGRAM, 1X/2WKS
     Route: 042
     Dates: start: 20150302, end: 20200501
  2. DENOSUMAB [Concomitant]
     Active Substance: DENOSUMAB
     Indication: Osteopathic treatment
     Dosage: 60 MILLIGRAM
     Route: 058
     Dates: end: 20190304
  3. ELDECALCITOL [Concomitant]
     Active Substance: ELDECALCITOL
     Indication: Osteopathic treatment
     Dosage: 0.75 MICROGRAM
     Route: 048
     Dates: end: 20190304
  4. LEVETIRACETAM [Concomitant]
     Active Substance: LEVETIRACETAM
     Indication: Gaucher^s disease
     Dosage: 2000 MILLIGRAM
     Route: 048
     Dates: end: 20190923
  5. LEVETIRACETAM [Concomitant]
     Active Substance: LEVETIRACETAM
     Indication: Gaucher^s disease
     Dosage: 2000 MILLIGRAM
     Route: 042
     Dates: start: 20191011, end: 20200203
  6. LANSOPRAZOLE [Concomitant]
     Active Substance: LANSOPRAZOLE
     Indication: Prophylaxis
     Dosage: 15 MICROGRAM
     Route: 048
     Dates: end: 20190805

REACTIONS (9)
  - General physical health deterioration [Fatal]
  - Gaucher^s disease type III [Fatal]
  - Nutritional condition abnormal [Fatal]
  - Pneumonia [Fatal]
  - Diarrhoea [Recovered/Resolved]
  - Hepatosplenomegaly [Not Recovered/Not Resolved]
  - Weight decreased [Not Recovered/Not Resolved]
  - Eating disorder [Not Recovered/Not Resolved]
  - Humerus fracture [Not Recovered/Not Resolved]

NARRATIVE: CASE EVENT DATE: 20190101
